FAERS Safety Report 22677386 (Version 4)
Quarter: 2024Q3

REPORT INFORMATION
  Report Type: Report from Study
  Country: JP (occurrence: JP)
  Receive Date: 20230706
  Receipt Date: 20240704
  Transmission Date: 20241017
  Serious: Yes (Hospitalization)
  Sender: ARGENX BVBA
  Company Number: JP-ARGENX-2023-ARGX-JP002169

PATIENT

DRUGS (12)
  1. EFGARTIGIMOD ALFA [Suspect]
     Active Substance: EFGARTIGIMOD ALFA
     Indication: Myasthenia gravis
     Dosage: 650 MG
     Route: 042
     Dates: start: 20220815, end: 20220905
  2. EFGARTIGIMOD ALFA [Suspect]
     Active Substance: EFGARTIGIMOD ALFA
     Dosage: 700 MG
     Route: 042
     Dates: start: 20221128, end: 20221219
  3. EFGARTIGIMOD ALFA [Suspect]
     Active Substance: EFGARTIGIMOD ALFA
     Dosage: 700 MG
     Route: 042
     Dates: start: 20230327, end: 20230417
  4. EFGARTIGIMOD ALFA [Suspect]
     Active Substance: EFGARTIGIMOD ALFA
     Dosage: 10 MG/KG
     Route: 042
     Dates: end: 20230710
  5. PREDNISOLONE [Concomitant]
     Active Substance: PREDNISOLONE
     Indication: Myasthenia gravis
     Dosage: 10 MG
     Route: 048
     Dates: start: 20220701
  6. NEORAL [Concomitant]
     Active Substance: CYCLOSPORINE
     Indication: Myasthenia gravis
     Dosage: 120 MG
     Route: 048
     Dates: start: 20220701
  7. TACROLIMUS [Concomitant]
     Active Substance: TACROLIMUS
     Indication: Myasthenia gravis
     Dosage: 3 MG
     Route: 048
     Dates: start: 20230206, end: 20230508
  8. TACROLIMUS [Concomitant]
     Active Substance: TACROLIMUS
     Dosage: 1 MG
     Route: 048
     Dates: start: 20230518
  9. CYCLOSPORINE [Concomitant]
     Active Substance: CYCLOSPORINE
     Indication: Product used for unknown indication
     Dosage: UNK
     Route: 065
  10. JANUVIA [Concomitant]
     Active Substance: SITAGLIPTIN PHOSPHATE
     Indication: Product used for unknown indication
     Dosage: UNK
     Route: 048
     Dates: start: 20220701
  11. HUMALOG [Concomitant]
     Active Substance: INSULIN LISPRO
     Indication: Product used for unknown indication
     Dosage: UNK
     Route: 058
     Dates: start: 20220701
  12. INSULIN GLARGINE [Concomitant]
     Active Substance: INSULIN GLARGINE
     Indication: Product used for unknown indication
     Dosage: UNK
     Route: 065
     Dates: start: 20220701

REACTIONS (6)
  - Decreased appetite [Recovered/Resolved]
  - Dehydration [Recovered/Resolved]
  - Renal impairment [Recovered/Resolved]
  - Infusion site extravasation [Recovered/Resolved]
  - Dizziness [Recovered/Resolved]
  - Asthenia [Recovered/Resolved]

NARRATIVE: CASE EVENT DATE: 20230429
